FAERS Safety Report 20111030 (Version 5)
Quarter: 2022Q1

REPORT INFORMATION
  Report Type: Report from Study
  Country: AU (occurrence: AU)
  Receive Date: 20211125
  Receipt Date: 20220218
  Transmission Date: 20220423
  Serious: Yes (Other)
  Sender: FDA-Public Use
  Company Number: AU-BAYER-2021A226587

PATIENT

DRUGS (2)
  1. EYLEA [Suspect]
     Active Substance: AFLIBERCEPT
     Indication: Diabetic retinal oedema
     Dosage: INJECTION TO LEFT EYE
     Route: 031
     Dates: start: 2021
  2. CHLORAMPHENICOL [Concomitant]
     Active Substance: CHLORAMPHENICOL
     Dosage: UNK
     Dates: start: 202108

REACTIONS (10)
  - Eye infection [Not Recovered/Not Resolved]
  - Cataract operation [Unknown]
  - Intentional dose omission [Unknown]
  - Visual impairment [Unknown]
  - Eye irritation [Unknown]
  - Visual impairment [Unknown]
  - Eye discharge [Unknown]
  - Injection site pain [Unknown]
  - Eye pain [Unknown]
  - Lacrimation increased [Unknown]

NARRATIVE: CASE EVENT DATE: 20210701
